FAERS Safety Report 7860087-0 (Version None)
Quarter: 2011Q4

REPORT INFORMATION
  Report Type: 
  Country: None (occurrence: None)
  Receive Date: 20111026
  Receipt Date: 20111013
  Transmission Date: 20120403
  Serious: Yes (Hospitalization)
  Sender: FDA-Public Use
  Company Number: 2011AL000082

PATIENT
  Age: 61 Year
  Sex: Female
  Weight: 102.5 kg

DRUGS (2)
  1. FLUOROURACIL [Suspect]
     Indication: COLON CANCER METASTATIC
     Dosage: 6600 MG; QOW; IV
     Route: 042
     Dates: start: 20101102
  2. FOLOTYN [Suspect]
     Indication: COLON CANCER METASTATIC
     Dosage: 165 MG; QOW; IV
     Route: 042
     Dates: start: 20101101

REACTIONS (2)
  - DEVICE RELATED INFECTION [None]
  - BACTERAEMIA [None]
